FAERS Safety Report 7811599-7 (Version None)
Quarter: 2011Q4

REPORT INFORMATION
  Report Type: 
  Country: None (occurrence: None)
  Receive Date: 20111011
  Receipt Date: 20110922
  Transmission Date: 20120403
  Serious: Yes (Life-Threatening, Hospitalization, Other)
  Sender: FDA-Public Use
  Company Number: US-CYPR-2011-000050

PATIENT
  Sex: Male
  Weight: 79.3795 kg

DRUGS (15)
  1. METOPROLOL TARTRATE [Concomitant]
  2. VITAMIN D [Concomitant]
  3. CLOPIDOGREL [Suspect]
     Indication: ANTIPLATELET THERAPY
     Dosage: (75 MG QD ORAL)
     Route: 048
     Dates: start: 20110309
  4. GABAPENTIN [Concomitant]
  5. MULTI-VITAMIN [Concomitant]
  6. CALCIUM CITRATE [Concomitant]
  7. CYPHER STENT [Concomitant]
  8. ASPIRIN [Suspect]
     Indication: CORONARY ARTERY DISEASE
     Dosage: (81 MG QD ORAL) ; (325 MG QD ORAL) ; (81 MG QD ORAL)
     Route: 048
     Dates: end: 20100301
  9. ASPIRIN [Suspect]
     Indication: CORONARY ARTERY DISEASE
     Dosage: (81 MG QD ORAL) ; (325 MG QD ORAL) ; (81 MG QD ORAL)
     Route: 048
     Dates: start: 20110608
  10. ASPIRIN [Suspect]
     Indication: CORONARY ARTERY DISEASE
     Dosage: (81 MG QD ORAL) ; (325 MG QD ORAL) ; (81 MG QD ORAL)
     Route: 048
     Dates: start: 20110306, end: 20110607
  11. CO Q10 [Concomitant]
  12. ATORVASTATIN [Concomitant]
  13. VITAMIN B6 [Concomitant]
  14. ASCORBIC ACID [Concomitant]
  15. VITAMIN B-12 [Concomitant]

REACTIONS (8)
  - LETHARGY [None]
  - DIZZINESS [None]
  - FACIAL PAIN [None]
  - NAUSEA [None]
  - PARAESTHESIA [None]
  - DIARRHOEA [None]
  - HYPERAESTHESIA [None]
  - ABASIA [None]
